FAERS Safety Report 25641419 (Version 1)
Quarter: 2025Q3

REPORT INFORMATION
  Report Type: Spontaneous
  Country: EU (occurrence: EU)
  Receive Date: 20250804
  Receipt Date: 20250804
  Transmission Date: 20251021
  Serious: Yes (Other)
  Sender: MYLAN
  Company Number: EU-UCBSA-2025041636

PATIENT

DRUGS (56)
  1. LEVETIRACETAM [Suspect]
     Active Substance: LEVETIRACETAM
     Indication: Partial seizures
  2. LEVETIRACETAM [Suspect]
     Active Substance: LEVETIRACETAM
     Route: 065
  3. LEVETIRACETAM [Suspect]
     Active Substance: LEVETIRACETAM
     Route: 065
  4. LEVETIRACETAM [Suspect]
     Active Substance: LEVETIRACETAM
  5. TOPIRAMATE [Suspect]
     Active Substance: TOPIRAMATE
     Indication: Partial seizures
  6. TOPIRAMATE [Suspect]
     Active Substance: TOPIRAMATE
     Route: 065
  7. TOPIRAMATE [Suspect]
     Active Substance: TOPIRAMATE
     Route: 065
  8. TOPIRAMATE [Suspect]
     Active Substance: TOPIRAMATE
  9. LAMOTRIGINE [Suspect]
     Active Substance: LAMOTRIGINE
     Indication: Partial seizures
  10. LAMOTRIGINE [Suspect]
     Active Substance: LAMOTRIGINE
     Route: 065
  11. LAMOTRIGINE [Suspect]
     Active Substance: LAMOTRIGINE
     Route: 065
  12. LAMOTRIGINE [Suspect]
     Active Substance: LAMOTRIGINE
  13. LACOSAMIDE [Suspect]
     Active Substance: LACOSAMIDE
     Indication: Partial seizures
  14. LACOSAMIDE [Suspect]
     Active Substance: LACOSAMIDE
     Route: 065
  15. LACOSAMIDE [Suspect]
     Active Substance: LACOSAMIDE
     Route: 065
  16. LACOSAMIDE [Suspect]
     Active Substance: LACOSAMIDE
  17. CARBAMAZEPINE [Suspect]
     Active Substance: CARBAMAZEPINE
     Indication: Partial seizures
  18. CARBAMAZEPINE [Suspect]
     Active Substance: CARBAMAZEPINE
     Route: 065
  19. CARBAMAZEPINE [Suspect]
     Active Substance: CARBAMAZEPINE
     Route: 065
  20. CARBAMAZEPINE [Suspect]
     Active Substance: CARBAMAZEPINE
  21. OXCARBAZEPINE [Suspect]
     Active Substance: OXCARBAZEPINE
     Indication: Partial seizures
  22. OXCARBAZEPINE [Suspect]
     Active Substance: OXCARBAZEPINE
     Route: 065
  23. OXCARBAZEPINE [Suspect]
     Active Substance: OXCARBAZEPINE
     Route: 065
  24. OXCARBAZEPINE [Suspect]
     Active Substance: OXCARBAZEPINE
  25. BRIVARACETAM [Suspect]
     Active Substance: BRIVARACETAM
     Indication: Partial seizures
  26. BRIVARACETAM [Suspect]
     Active Substance: BRIVARACETAM
     Route: 065
  27. BRIVARACETAM [Suspect]
     Active Substance: BRIVARACETAM
     Route: 065
  28. BRIVARACETAM [Suspect]
     Active Substance: BRIVARACETAM
  29. CLOBAZAM [Suspect]
     Active Substance: CLOBAZAM
     Indication: Partial seizures
  30. CLOBAZAM [Suspect]
     Active Substance: CLOBAZAM
     Route: 065
  31. CLOBAZAM [Suspect]
     Active Substance: CLOBAZAM
     Route: 065
  32. CLOBAZAM [Suspect]
     Active Substance: CLOBAZAM
  33. VALPROIC ACID [Suspect]
     Active Substance: VALPROIC ACID
     Indication: Partial seizures
  34. VALPROIC ACID [Suspect]
     Active Substance: VALPROIC ACID
     Route: 065
  35. VALPROIC ACID [Suspect]
     Active Substance: VALPROIC ACID
     Route: 065
  36. VALPROIC ACID [Suspect]
     Active Substance: VALPROIC ACID
  37. PERAMPANEL [Suspect]
     Active Substance: PERAMPANEL
     Indication: Partial seizures
  38. PERAMPANEL [Suspect]
     Active Substance: PERAMPANEL
     Route: 065
  39. PERAMPANEL [Suspect]
     Active Substance: PERAMPANEL
     Route: 065
  40. PERAMPANEL [Suspect]
     Active Substance: PERAMPANEL
  41. CENOBAMATE [Suspect]
     Active Substance: CENOBAMATE
     Indication: Partial seizures
  42. CENOBAMATE [Suspect]
     Active Substance: CENOBAMATE
     Route: 065
  43. CENOBAMATE [Suspect]
     Active Substance: CENOBAMATE
     Route: 065
  44. CENOBAMATE [Suspect]
     Active Substance: CENOBAMATE
  45. ZONISAMIDE [Suspect]
     Active Substance: ZONISAMIDE
     Indication: Partial seizures
  46. ZONISAMIDE [Suspect]
     Active Substance: ZONISAMIDE
     Route: 065
  47. ZONISAMIDE [Suspect]
     Active Substance: ZONISAMIDE
     Route: 065
  48. ZONISAMIDE [Suspect]
     Active Substance: ZONISAMIDE
  49. PREGABALIN [Concomitant]
     Active Substance: PREGABALIN
  50. PREGABALIN [Concomitant]
     Active Substance: PREGABALIN
     Route: 065
  51. PREGABALIN [Concomitant]
     Active Substance: PREGABALIN
     Route: 065
  52. PREGABALIN [Concomitant]
     Active Substance: PREGABALIN
  53. GABAPENTIN [Concomitant]
     Active Substance: GABAPENTIN
     Indication: Product used for unknown indication
  54. GABAPENTIN [Concomitant]
     Active Substance: GABAPENTIN
     Route: 065
  55. GABAPENTIN [Concomitant]
     Active Substance: GABAPENTIN
     Route: 065
  56. GABAPENTIN [Concomitant]
     Active Substance: GABAPENTIN

REACTIONS (15)
  - Seizure [Unknown]
  - Pancytopenia [Unknown]
  - Multiple-drug resistance [Unknown]
  - Dizziness [Unknown]
  - Constipation [Unknown]
  - Fatigue [Unknown]
  - Hyponatraemia [Unknown]
  - Rash erythematous [Unknown]
  - Hypersensitivity [Unknown]
  - Asthenia [Unknown]
  - Vertigo [Unknown]
  - Nausea [Unknown]
  - Aggression [Unknown]
  - Headache [Unknown]
  - Ataxia [Unknown]
